FAERS Safety Report 7818944-7 (Version None)
Quarter: 2011Q4

REPORT INFORMATION
  Report Type: 
  Country: None (occurrence: None)
  Receive Date: 20111018
  Receipt Date: 20111010
  Transmission Date: 20120403
  Serious: Yes (Other)
  Sender: FDA-Public Use
  Company Number: US-JNJFOC-20111004790

PATIENT
  Sex: Female
  Weight: 81.65 kg

DRUGS (1)
  1. LEVAQUIN [Suspect]
     Indication: NASOPHARYNGITIS
     Route: 048
     Dates: start: 20110301, end: 20110301

REACTIONS (5)
  - NODULE [None]
  - MUSCLE INJURY [None]
  - PAIN [None]
  - MUSCLE SPASMS [None]
  - FEELING ABNORMAL [None]
